FAERS Safety Report 16335400 (Version 2)
Quarter: 2019Q2

REPORT INFORMATION
  Report Type: Report from Study
  Country: None (occurrence: US)
  Receive Date: 20190521
  Receipt Date: 20190624
  Transmission Date: 20190711
  Serious: Yes (Other)
  Sender: FDA-Public Use
  Company Number: US-ABBVIE-19K-163-2708959-00

PATIENT
  Age: 44 Year
  Sex: Male
  Weight: 78.09 kg

DRUGS (11)
  1. WELLBUTRIN [Concomitant]
     Active Substance: BUPROPION HYDROCHLORIDE
     Indication: PAIN
  2. BUDESONIDE. [Concomitant]
     Active Substance: BUDESONIDE
     Indication: ABDOMINAL PAIN
  3. HUMIRA [Suspect]
     Active Substance: ADALIMUMAB
     Route: 058
     Dates: start: 201903, end: 20190514
  4. LINSEED [Concomitant]
     Active Substance: HERBALS\LINSEED OIL
     Indication: CONSTIPATION
  5. HUMIRA [Suspect]
     Active Substance: ADALIMUMAB
     Indication: PSORIASIS
     Dosage: DAY 15
     Route: 058
     Dates: start: 20190322, end: 20190322
  6. HUMIRA [Suspect]
     Active Substance: ADALIMUMAB
     Indication: CROHN^S DISEASE
     Dosage: DAY 1
     Route: 058
     Dates: start: 20190308, end: 20190308
  7. METHADONE [Concomitant]
     Active Substance: METHADONE HYDROCHLORIDE
     Indication: PAIN
  8. VALIUM [Concomitant]
     Active Substance: DIAZEPAM
     Indication: PAIN
  9. CANNABIDIOL OIL [Concomitant]
     Indication: PAIN
  10. MIRALAX [Concomitant]
     Active Substance: POLYETHYLENE GLYCOL 3350
     Indication: CONSTIPATION
  11. MERCAPTOPURINE. [Concomitant]
     Active Substance: MERCAPTOPURINE
     Indication: ADJUVANT THERAPY

REACTIONS (8)
  - Abdominal pain [Not Recovered/Not Resolved]
  - Systemic lupus erythematosus rash [Recovered/Resolved]
  - Abdominal pain [Recovered/Resolved]
  - Frequent bowel movements [Not Recovered/Not Resolved]
  - Psoriasis [Unknown]
  - Weight decreased [Recovering/Resolving]
  - Hypophagia [Not Recovered/Not Resolved]
  - Decreased appetite [Recovering/Resolving]

NARRATIVE: CASE EVENT DATE: 2019
